FAERS Safety Report 6544371-9 (Version None)
Quarter: 2010Q1

REPORT INFORMATION
  Report Type: 
  Country: None (occurrence: None)
  Receive Date: 20100120
  Receipt Date: 20100120
  Transmission Date: 20100710
  Serious: Yes (Life-Threatening)
  Sender: FDA-Public Use
  Company Number: None

PATIENT
  Sex: Female
  Weight: 145.151 kg

DRUGS (1)
  1. LYRICA [Suspect]
     Indication: FIBROMYALGIA
     Dosage: 75 MG. BID PO TOTAL OF 5 DOSES OF 25 MG
     Route: 048
     Dates: start: 20091229, end: 20091231

REACTIONS (14)
  - ANGIOEDEMA [None]
  - ASTHENIA [None]
  - BURNING SENSATION [None]
  - DIARRHOEA [None]
  - DYSPHONIA [None]
  - ERYTHEMA [None]
  - FATIGUE [None]
  - FEELING HOT [None]
  - FLUSHING [None]
  - HYPOAESTHESIA ORAL [None]
  - LIP SWELLING [None]
  - MUSCLE SPASMS [None]
  - MUSCULOSKELETAL STIFFNESS [None]
  - NAUSEA [None]
